FAERS Safety Report 6240519-4 (Version None)
Quarter: 2009Q2

REPORT INFORMATION
  Report Type: 
  Country: None (occurrence: None)
  Receive Date: 20090623
  Receipt Date: 20090413
  Transmission Date: 20091009
  Serious: No
  Sender: FDA-Public Use
  Company Number: US-ASTRAZENECA-2009UW09287

PATIENT
  Age: 65 Year
  Sex: Male
  Weight: 78.5 kg

DRUGS (9)
  1. PULMICORT FLEXHALER [Suspect]
     Indication: SARCOIDOSIS
     Route: 055
     Dates: start: 20090409
  2. PRILOSEC [Suspect]
     Route: 048
  3. ADVAIR HFA [Concomitant]
  4. SPIRIVA [Concomitant]
  5. METOPROLOL SUCCINATE [Concomitant]
  6. GLYBURIDE [Concomitant]
  7. METFORMIN HCL [Concomitant]
  8. SIMVASTATIN [Concomitant]
  9. ZETIA [Concomitant]

REACTIONS (1)
  - DYSPHONIA [None]
